FAERS Safety Report 4382796-0 (Version None)
Quarter: 2004Q2

REPORT INFORMATION
  Report Type: 
  Country: None (occurrence: None)
  Receive Date: 20040617
  Receipt Date: 20040603
  Transmission Date: 20050107
  Serious: Yes (Hospitalization)
  Sender: FDA-Public Use
  Company Number: 197338

PATIENT
  Age: 43 Year
  Sex: Female

DRUGS (1)
  1. AVONEX [Suspect]
     Indication: MULTIPLE SCLEROSIS
     Dates: start: 20010216, end: 20040101

REACTIONS (5)
  - CONGENITAL ANOMALY [None]
  - HERNIA [None]
  - HYPOAESTHESIA ORAL [None]
  - HYSTERECTOMY [None]
  - SURGERY [None]
